FAERS Safety Report 6959474-4 (Version None)
Quarter: 2010Q3

REPORT INFORMATION
  Report Type: 
  Country: None (occurrence: None)
  Receive Date: 20100827
  Receipt Date: 20100820
  Transmission Date: 20110219
  Serious: Yes (Hospitalization, Other)
  Sender: FDA-Public Use
  Company Number: 2010SP035773

PATIENT
  Age: 57 Year
  Sex: Female

DRUGS (3)
  1. RIBAVIRIN [Suspect]
     Indication: HEPATITIS C
     Dosage: PO
     Route: 048
     Dates: start: 20090101, end: 20090501
  2. RIBAVIRIN [Suspect]
     Indication: HEPATITIS C
     Dosage: PO
     Route: 048
     Dates: start: 20100624
  3. INFERGEN [Suspect]
     Indication: HEPATITIS C
     Dates: start: 20090101, end: 20090501

REACTIONS (4)
  - ANAEMIA [None]
  - BILE DUCT STONE [None]
  - HYPERTHYROIDISM [None]
  - OSTEOPOROSIS [None]
